FAERS Safety Report 6185938-X (Version None)
Quarter: 2009Q2

REPORT INFORMATION
  Report Type: 
  Country: None (occurrence: None)
  Receive Date: 20090511
  Receipt Date: 20090430
  Transmission Date: 20091009
  Serious: Yes (Hospitalization, Other)
  Sender: FDA-Public Use
  Company Number: JP-PFIZER INC-2009193206

PATIENT
  Age: 63 Year

DRUGS (12)
  1. GABAPEN [Suspect]
     Indication: ANALGESIA
     Dosage: 1 TABLET
     Dates: start: 20090330, end: 20090330
  2. TRYPTANOL [Concomitant]
     Indication: DEPRESSION
     Dosage: UNK
     Route: 048
  3. TAKEPRON [Concomitant]
     Dosage: UNK
     Route: 048
  4. THYRADIN [Concomitant]
     Indication: HYPOTHYROIDISM
     Dosage: UNK
     Route: 048
  5. GLAKAY [Concomitant]
     Indication: OSTEOPOROSIS
     Dosage: UNK
     Route: 048
  6. ALFAROL [Concomitant]
     Indication: OSTEOPOROSIS
     Dosage: UNK
     Route: 048
  7. OPALMON [Concomitant]
     Dosage: UNK
     Route: 048
  8. METLIGINE [Concomitant]
     Indication: HYPOTENSION
     Dosage: UNK
     Route: 048
  9. RISUMIC [Concomitant]
     Indication: HYPOTENSION
     Dosage: UNK
     Route: 048
  10. DOPS [Concomitant]
     Indication: HYPOTENSION
     Dosage: UNK
     Route: 048
  11. RISPERDAL [Concomitant]
     Indication: RESTLESSNESS
     Dosage: UNK
     Route: 048
     Dates: start: 20090321
  12. RISPERDAL [Concomitant]
     Indication: INSOMNIA

REACTIONS (3)
  - ALTERED STATE OF CONSCIOUSNESS [None]
  - DRUG TOXICITY [None]
  - SPEECH DISORDER [None]
